FAERS Safety Report 23369779 (Version 3)
Quarter: 2024Q1

REPORT INFORMATION
  Report Type: Report from Study
  Country: DE (occurrence: DE)
  Receive Date: 20240105
  Receipt Date: 20240206
  Transmission Date: 20240410
  Serious: Yes (Hospitalization, Other)
  Sender: FDA-Public Use
  Company Number: None

PATIENT

DRUGS (13)
  1. PEGASPARGASE [Suspect]
     Active Substance: PEGASPARGASE
     Indication: B-cell prolymphocytic leukaemia
     Dosage: 810 IU, ONE DOSE
     Route: 042
     Dates: start: 20231211, end: 20231211
  2. BESPONSA [Suspect]
     Active Substance: INOTUZUMAB OZOGAMICIN
     Indication: B-cell prolymphocytic leukaemia
     Dosage: 0.41 MG, ONE DOSE
     Route: 042
     Dates: start: 20231107, end: 20231123
  3. DEXAMETHASONE [Suspect]
     Active Substance: DEXAMETHASONE
     Indication: B-cell prolymphocytic leukaemia
     Dosage: 2 MG, TWICE DAILY
     Route: 048
     Dates: start: 20231205, end: 20231211
  4. METHOTREXATE [Suspect]
     Active Substance: METHOTREXATE
     Indication: B-cell prolymphocytic leukaemia
     Dosage: 12 MG, ONE DOSE
     Route: 037
     Dates: start: 20231205, end: 20231205
  5. METHOTREXATE [Suspect]
     Active Substance: METHOTREXATE
     Dosage: 810 MG, INFUSION OVER 36 HOURS
     Route: 037
     Dates: start: 20231206, end: 20231207
  6. CYTARABINE [Suspect]
     Active Substance: CYTARABINE
     Indication: B-cell prolymphocytic leukaemia
     Dosage: 30 NG, ONE DOSE, FIRST REGIMEN
     Route: 037
     Dates: start: 20231205, end: 20231205
  7. CYTARABINE [Suspect]
     Active Substance: CYTARABINE
     Dosage: 1620 MG, TWICE DAILY, SECOND REGIMEN
     Route: 042
     Dates: start: 20231210, end: 20231210
  8. PREDNISOLONE [Suspect]
     Active Substance: PREDNISOLONE
     Indication: B-cell prolymphocytic leukaemia
     Dosage: 10 MG, ONCE
     Route: 037
     Dates: start: 20231205, end: 20231205
  9. VINCRISTINE SULFATE [Suspect]
     Active Substance: VINCRISTINE SULFATE
     Indication: B-cell prolymphocytic leukaemia
     Dosage: 1.22 ON DAY 1 AND DAY 6
     Route: 065
     Dates: start: 20231206, end: 20231211
  10. CYCLOPHOSPHAMIDE [Suspect]
     Active Substance: CYCLOPHOSPHAMIDE
     Indication: B-cell prolymphocytic leukaemia
     Dosage: 162 MG, 5 DOSES ON DAY 2-DAY 4 OF PROTOCOL
     Route: 042
     Dates: start: 20231207, end: 20231209
  11. AMBISOME [Concomitant]
     Active Substance: AMPHOTERICIN B
     Indication: Immunosuppression
     Dosage: UNK, ONGOING
     Route: 065
     Dates: start: 20231102
  12. COTRIMOXAZOLE [Concomitant]
     Active Substance: SULFAMETHOXAZOLE\TRIMETHOPRIM
     Indication: Immunosuppression
     Dosage: UNK
     Route: 048
     Dates: start: 202311
  13. Novalgin [Concomitant]
     Indication: Product used for unknown indication
     Dosage: UNK, ONGOING
     Route: 048
     Dates: start: 20231208

REACTIONS (3)
  - Mucosal inflammation [Recovered/Resolved]
  - Pyrexia [Recovered/Resolved]
  - Myelosuppression [Unknown]

NARRATIVE: CASE EVENT DATE: 20231214
